FAERS Safety Report 19188512 (Version 1)
Quarter: 2021Q2

REPORT INFORMATION
  Report Type: Spontaneous
  Country: JP (occurrence: JP)
  Receive Date: 20210428
  Receipt Date: 20210428
  Transmission Date: 20210717
  Serious: Yes (Death, Other)
  Sender: FDA-Public Use
  Company Number: NVSJ2021JP006281

PATIENT
  Age: 0 Day
  Sex: Male

DRUGS (3)
  1. PREDONINE [Concomitant]
     Active Substance: PREDNISOLONE
     Indication: FOETAL EXPOSURE DURING PREGNANCY
     Dosage: 2.5 MG, QD
     Route: 064
  2. NEORAL [Suspect]
     Active Substance: CYCLOSPORINE
     Indication: FOETAL EXPOSURE DURING PREGNANCY
     Dosage: 75 MG, BID
     Route: 064
  3. IMURAN [Concomitant]
     Active Substance: AZATHIOPRINE
     Indication: FOETAL EXPOSURE DURING PREGNANCY
     Dosage: 50 MG, BID
     Route: 064

REACTIONS (6)
  - Cerebral ventricle dilatation [Fatal]
  - Foetal exposure during pregnancy [Unknown]
  - Low birth weight baby [Unknown]
  - Congenital cytomegalovirus infection [Fatal]
  - Neuroendocrine carcinoma [Fatal]
  - Hepatosplenomegaly [Fatal]

NARRATIVE: CASE EVENT DATE: 20070621
